FAERS Safety Report 5573073-0 (Version None)
Quarter: 2007Q4

REPORT INFORMATION
  Report Type: 
  Country: None (occurrence: None)
  Receive Date: 20071224
  Receipt Date: 20071212
  Transmission Date: 20080405
  Serious: Yes (Death)
  Sender: FDA-Public Use
  Company Number: US-ROCHE-537249

PATIENT

DRUGS (2)
  1. RIBAVIRIN [Suspect]
     Route: 048
  2. PEG-INTERFERON ALFA 2B [Suspect]
     Dosage: DOSING AMT: 1.5 MICGRAM/KG
     Route: 058

REACTIONS (1)
  - DEATH [None]
